FAERS Safety Report 21925147 (Version 1)
Quarter: 2023Q1

REPORT INFORMATION
  Report Type: Spontaneous
  Country: FR (occurrence: FR)
  Receive Date: 20230130
  Receipt Date: 20230130
  Transmission Date: 20230417
  Serious: Yes (Other)
  Sender: FDA-Public Use
  Company Number: FR-AFSSAPS-AVNT2023000045

PATIENT
  Age: 19 Year
  Sex: Male

DRUGS (1)
  1. OXYCODONE [Suspect]
     Active Substance: OXYCODONE
     Indication: Product used for unknown indication
     Dosage: }4X/Y (}80 MG/Y)
     Route: 048
     Dates: start: 2022

REACTIONS (1)
  - Drug dependence [Not Recovered/Not Resolved]
